FAERS Safety Report 5239155-8 (Version None)
Quarter: 2007Q1

REPORT INFORMATION
  Report Type: 
  Country: None (occurrence: None)
  Receive Date: 20070212
  Receipt Date: 20070129
  Transmission Date: 20070707
  Serious: Yes (Other)
  Sender: FDA-Public Use
  Company Number: 2007EN000006

PATIENT
  Sex: Male
  Weight: 10 kg

DRUGS (1)
  1. ADAGEN [Suspect]
     Indication: COMBINED IMMUNODEFICIENCY
     Dosage: SEE IMAGE
     Dates: start: 20060901

REACTIONS (1)
  - PNEUMOCYSTIS JIROVECI PNEUMONIA [None]
